FAERS Safety Report 21859362 (Version 4)
Quarter: 2023Q1

REPORT INFORMATION
  Report Type: Spontaneous
  Country: US (occurrence: US)
  Receive Date: 20230113
  Receipt Date: 20230302
  Transmission Date: 20230418
  Serious: No
  Sender: FDA-Public Use
  Company Number: US-PFIZER INC-PV202300004955

PATIENT
  Age: 17 Year
  Sex: Male
  Weight: 49.846 kg

DRUGS (1)
  1. GENOTROPIN [Suspect]
     Active Substance: SOMATROPIN
     Indication: Growth hormone deficiency
     Dosage: 2.8 MG, DAILY (EVERY NIGHT)

REACTIONS (2)
  - Device physical property issue [Unknown]
  - Poor quality device used [Unknown]
